FAERS Safety Report 6959900-0 (Version None)
Quarter: 2010Q3

REPORT INFORMATION
  Report Type: 
  Country: None (occurrence: None)
  Receive Date: 20100901
  Receipt Date: 20100819
  Transmission Date: 20110219
  Serious: No
  Sender: FDA-Public Use
  Company Number: US-BIOGENIDEC-2010BI028996

PATIENT
  Age: 53 Year
  Sex: Female

DRUGS (1)
  1. AVONEX [Suspect]
     Indication: MULTIPLE SCLEROSIS
     Route: 030
     Dates: start: 20070801

REACTIONS (6)
  - GAIT DISTURBANCE [None]
  - INSOMNIA [None]
  - OPTIC NEURITIS [None]
  - PAIN [None]
  - TEMPERATURE INTOLERANCE [None]
  - VISUAL IMPAIRMENT [None]
